FAERS Safety Report 9912502 (Version 4)
Quarter: 2014Q2

REPORT INFORMATION
  Report Type: Spontaneous
  Country: RU (occurrence: RU)
  Receive Date: 20140220
  Receipt Date: 20140402
  Transmission Date: 20141212
  Serious: Yes (Life-Threatening, Hospitalization, Disabling, Other)
  Sender: FDA-Public Use
  Company Number: RU-009507513-1402RUS008377

PATIENT
  Age: 36 Year
  Sex: Male
  Weight: 68 kg

DRUGS (3)
  1. VICTRELIS [Suspect]
     Indication: CHRONIC HEPATITIS C
     Dosage: 1200 MG DAILY
     Route: 048
     Dates: start: 20131025, end: 20131211
  2. PEGINTRON [Suspect]
     Indication: CHRONIC HEPATITIS C
     Dosage: 108 MCG WEEKLY
     Route: 058
     Dates: start: 20130927, end: 20131206
  3. REBETOL [Suspect]
     Indication: CHRONIC HEPATITIS C
     Dosage: 1000 MG DAILY
     Route: 048
     Dates: start: 20130927, end: 20131211

REACTIONS (15)
  - Osteonecrosis [Unknown]
  - Bone marrow disorder [Not Recovered/Not Resolved]
  - Agranulocytosis [Recovered/Resolved]
  - Myelodysplastic syndrome [Not Recovered/Not Resolved]
  - Resorption bone increased [Not Recovered/Not Resolved]
  - Osteoporosis [Not Recovered/Not Resolved]
  - Pyrexia [Recovered/Resolved]
  - Anaemia [Recovered/Resolved]
  - Neutropenia [Unknown]
  - Headache [Unknown]
  - Dysgeusia [Unknown]
  - Osteoarthritis [Unknown]
  - Osteosclerosis [Unknown]
  - Splenomegaly [Unknown]
  - Prostatomegaly [Unknown]
